FAERS Safety Report 4829685-2 (Version None)
Quarter: 2005Q4

REPORT INFORMATION
  Report Type: 
  Country: None (occurrence: None)
  Receive Date: 20051116
  Receipt Date: 20050930
  Transmission Date: 20060501
  Serious: Yes (Hospitalization)
  Sender: FDA-Public Use
  Company Number: US-MERCK-0510USA01901

PATIENT
  Age: 47 Year
  Sex: Male
  Weight: 72 kg

DRUGS (15)
  1. VIOXX [Suspect]
     Indication: PAIN
     Route: 048
     Dates: start: 20030101, end: 20040930
  2. VIOXX [Suspect]
     Indication: ARTHRITIS
     Route: 048
     Dates: start: 20030101, end: 20040930
  3. CELEXA [Concomitant]
     Route: 048
  4. CELEXA [Concomitant]
     Route: 048
  5. DITROPAN XL [Concomitant]
     Route: 048
  6. ISOSORBIDE [Concomitant]
     Route: 048
  7. MOTRIN [Concomitant]
     Route: 048
  8. LANOXIN [Concomitant]
     Route: 048
  9. NITROQUICK [Concomitant]
     Route: 060
  10. ZETIA [Concomitant]
     Route: 048
  11. ALTACE [Concomitant]
     Route: 048
  12. PLAVIX [Concomitant]
     Route: 048
  13. DILANTIN [Concomitant]
     Route: 048
  14. TOPROL-XL [Concomitant]
     Route: 048
  15. ASPIRIN [Concomitant]
     Route: 048

REACTIONS (15)
  - ARTERIAL OCCLUSIVE DISEASE [None]
  - CARDIOVASCULAR DISORDER [None]
  - CEREBROVASCULAR ACCIDENT [None]
  - CHEST PAIN [None]
  - CONVULSION [None]
  - FALL [None]
  - GALLBLADDER DISORDER [None]
  - GASTROINTESTINAL DISORDER [None]
  - HEADACHE [None]
  - MYOCARDIAL INFARCTION [None]
  - PANCREATITIS [None]
  - RENAL DISORDER [None]
  - ROAD TRAFFIC ACCIDENT [None]
  - SURGERY [None]
  - VOMITING [None]
